FAERS Safety Report 8097374-X (Version None)
Quarter: 2012Q1

REPORT INFORMATION
  Report Type: 
  Country: None (occurrence: None)
  Receive Date: 20120128
  Receipt Date: 20110622
  Transmission Date: 20120608
  Serious: No
  Sender: FDA-Public Use
  Company Number: US-ABBOTT-11P-163-0734348-00

PATIENT
  Sex: Female

DRUGS (5)
  1. ZITHROMYCIN [Concomitant]
     Indication: SINUSITIS
  2. HUMIRA [Suspect]
     Indication: RHEUMATOID ARTHRITIS
  3. HUMIRA [Suspect]
     Indication: CROHN'S DISEASE
     Dates: start: 20090101
  4. CELLCEPT [Concomitant]
     Indication: UVEITIS
  5. ZITHROMYCIN [Concomitant]
     Indication: PNEUMONIA

REACTIONS (2)
  - PNEUMONIA [None]
  - SINUSITIS [None]
